FAERS Safety Report 11309674 (Version 1)
Quarter: 2015Q3

REPORT INFORMATION
  Report Type: Spontaneous
  Country: CH (occurrence: CH)
  Receive Date: 20150724
  Receipt Date: 20150724
  Transmission Date: 20151125
  Serious: Yes (Hospitalization)
  Sender: FDA-Public Use
  Company Number: CH-MERCK-1507CHE007579

PATIENT
  Age: 66 Year
  Sex: Female

DRUGS (17)
  1. TIENAM [Suspect]
     Active Substance: CILASTATIN SODIUM\IMIPENEM
     Indication: UROSEPSIS
     Dosage: TOTAL DAILY DOSE: 1000 MG
     Route: 042
     Dates: start: 20150419, end: 20150423
  2. HYDROCORTISONE. [Concomitant]
     Active Substance: HYDROCORTISONE
     Dosage: 10 MG, BID
     Route: 048
  3. BUPRENORPHINE HYDROCHLORIDE. [Concomitant]
     Active Substance: BUPRENORPHINE HYDROCHLORIDE
     Dosage: 0.2 MG, 4 PER 1 DAY
     Route: 060
  4. TRANSTEC [Concomitant]
     Active Substance: BUPRENORPHINE
     Dosage: 1 DF PER 96 HOURS, 52.5 MICROGRAM/HR
     Route: 062
  5. CYMBALTA [Concomitant]
     Active Substance: DULOXETINE HYDROCHLORIDE
     Dosage: 60 MG, QD
     Route: 048
  6. REMERON [Concomitant]
     Active Substance: MIRTAZAPINE
     Dosage: 15 MG, QD
     Route: 048
  7. PROGRAF [Concomitant]
     Active Substance: TACROLIMUS\TACROLIMUS ANHYDROUS
     Dosage: 0.5 MG, BID
     Route: 048
  8. TORSEMIDE. [Concomitant]
     Active Substance: TORSEMIDE
     Dosage: 20 MG, QD
     Route: 048
  9. NEXIUM [Concomitant]
     Active Substance: ESOMEPRAZOLE MAGNESIUM
     Dosage: 40 MG, QD
     Route: 048
  10. SERETIDE [Concomitant]
     Active Substance: FLUTICASONE FUROATE\SALMETEROL XINAFOATE
     Dosage: 250 MG, BID
     Route: 045
  11. INSULATARD HM [Concomitant]
     Dosage: 8 IU, BID
     Route: 058
  12. ENALAPRIL MALEATE. [Concomitant]
     Active Substance: ENALAPRIL MALEATE
     Dosage: 10 MG, BID
     Route: 048
  13. SPIRIVA [Concomitant]
     Active Substance: TIOTROPIUM BROMIDE MONOHYDRATE
     Dosage: 18 MICROGRAM, QD
     Route: 045
  14. ASPIRIN CARDIO [Concomitant]
     Active Substance: ASPIRIN
     Dosage: 100 MG, QD
     Route: 048
  15. HEPSERA [Concomitant]
     Active Substance: ADEFOVIR DIPIVOXIL
     Dosage: 10 MG, 3 PER 1 WEEK
  16. BELOC (METOPROLOL SUCCINATE) [Concomitant]
     Dosage: 50 MG, QD
     Route: 048
  17. CRESTOR [Concomitant]
     Active Substance: ROSUVASTATIN CALCIUM
     Dosage: 20 MG, QD
     Route: 048

REACTIONS (4)
  - Anaemia [Recovered/Resolved]
  - Lymphopenia [Recovered/Resolved]
  - Condition aggravated [Recovered/Resolved]
  - Thrombocytopenia [Recovered/Resolved]

NARRATIVE: CASE EVENT DATE: 20150421
